FAERS Safety Report 4755096-4 (Version None)
Quarter: 2005Q3

REPORT INFORMATION
  Report Type: 
  Country: None (occurrence: None)
  Receive Date: 20050825
  Receipt Date: 20050822
  Transmission Date: 20060218
  Serious: Yes (Other)
  Sender: FDA-Public Use
  Company Number: 200512360GDS

PATIENT
  Age: 57 Year
  Sex: Male
  Weight: 64 kg

DRUGS (4)
  1. CIPROFLOXACIN [Suspect]
     Indication: CHOLECYSTITIS ACUTE
     Dosage: 1000 MG, TOTAL DAILY, ORAL
     Route: 048
     Dates: start: 20050718, end: 20050728
  2. URDAFALK [Concomitant]
  3. BISOPROLOL [Concomitant]
  4. THERAGRAN-M [Concomitant]

REACTIONS (3)
  - DRUG INEFFECTIVE [None]
  - PHARYNGOLARYNGEAL PAIN [None]
  - POOR QUALITY DRUG ADMINISTERED [None]
